FAERS Safety Report 9461387 (Version 1)
Quarter: 2013Q3

REPORT INFORMATION
  Report Type: Spontaneous
  Country: US (occurrence: None)
  Receive Date: 20130814
  Receipt Date: 20130814
  Transmission Date: 20140515
  Serious: Yes (Other)
  Sender: FDA-Public Use
  Company Number: None

PATIENT
  Age: 6 Year
  Sex: Female
  Weight: 89.36 kg

DRUGS (18)
  1. FERROUS SULFATE [Suspect]
     Indication: BLOOD COUNT ABNORMAL
     Dosage: 325 MG TABLET 1 PILL A DAY 1 DAILY BY MOUTH
     Route: 048
  2. DIOVAN [Concomitant]
  3. CLONIDINE [Concomitant]
  4. AMLODIPINE [Concomitant]
  5. BESYLATE [Concomitant]
  6. TOVIAZ [Concomitant]
  7. OMEPRAZOLE [Concomitant]
  8. AMITIZA [Concomitant]
  9. FERROUS SULFATE [Concomitant]
  10. POTASSIUM CL [Concomitant]
  11. VITAMIN D3 [Concomitant]
  12. DICYCLOMINE [Concomitant]
  13. CRESTOR [Concomitant]
  14. GABAPENTIN [Concomitant]
  15. PROAIR [Concomitant]
  16. CPAP [Concomitant]
  17. ESCITALOPRAM [Concomitant]
  18. HYDROCODONE/APAP [Concomitant]

REACTIONS (1)
  - Dizziness [None]
